FAERS Safety Report 6927767-2 (Version None)
Quarter: 2010Q3

REPORT INFORMATION
  Report Type: 
  Country: None (occurrence: None)
  Receive Date: 20100817
  Receipt Date: 20100812
  Transmission Date: 20110219
  Serious: Yes (Death)
  Sender: FDA-Public Use
  Company Number: GB-SANOFI-AVENTIS-2010SA043477

PATIENT
  Age: 64 Year
  Sex: Male
  Weight: 99.1 kg

DRUGS (14)
  1. INSULIN GLARGINE [Suspect]
     Indication: TYPE 2 DIABETES MELLITUS
     Route: 058
     Dates: start: 20100407
  2. INSULIN BASAL [Suspect]
     Indication: TYPE 2 DIABETES MELLITUS
     Dates: start: 20100407
  3. METFORMIN [Concomitant]
     Dates: start: 20060101
  4. ASPIRIN [Concomitant]
     Dates: start: 20060101
  5. IRBESARTAN [Concomitant]
     Dates: start: 20060101
  6. FUROSEMIDE [Concomitant]
     Dates: start: 20060101
  7. RAMIPRIL [Concomitant]
     Dates: start: 20060101
  8. AMITRIPTYLINE HYDROCHLORIDE [Concomitant]
     Dates: start: 20060101
  9. MIRTAZAPINE [Concomitant]
     Dates: start: 20060101
  10. OXYCONTIN [Concomitant]
     Dates: start: 20080101
  11. ISOSORBIDE MONONITRATE [Concomitant]
     Dates: start: 20100301
  12. ACETAMINOPHEN [Concomitant]
     Dates: start: 20060101
  13. ATORVASTATIN [Concomitant]
     Dates: start: 20100401
  14. SILDENAFIL [Concomitant]
     Dates: start: 20021111

REACTIONS (1)
  - DEATH [None]
